FAERS Safety Report 25575406 (Version 1)
Quarter: 2025Q3

REPORT INFORMATION
  Report Type: Spontaneous
  Country: CN (occurrence: CN)
  Receive Date: 20250718
  Receipt Date: 20250718
  Transmission Date: 20251021
  Serious: Yes (Other)
  Sender: BEIGENE
  Company Number: CN-BEIGENE-BGN-2025-011427

PATIENT
  Age: 63 Year
  Weight: 74 kg

DRUGS (8)
  1. TISLELIZUMAB [Suspect]
     Active Substance: TISLELIZUMAB
     Indication: Metastases to meninges
     Dosage: 0.2 GRAM D1, Q3WK
  2. TISLELIZUMAB [Suspect]
     Active Substance: TISLELIZUMAB
     Dosage: 0.2 GRAM D1, Q3WK
     Route: 041
  3. TISLELIZUMAB [Suspect]
     Active Substance: TISLELIZUMAB
     Dosage: 0.2 GRAM D1, Q3WK
     Route: 041
  4. TISLELIZUMAB [Suspect]
     Active Substance: TISLELIZUMAB
     Dosage: 0.2 GRAM D1, Q3WK
  5. PEMETREXED [Suspect]
     Active Substance: PEMETREXED
     Indication: Metastases to meninges
     Dosage: 0.9 GRAM D1, Q3WK
     Route: 037
  6. PEMETREXED [Suspect]
     Active Substance: PEMETREXED
     Dosage: 0.9 GRAM D1, Q3WK
  7. CATEQUENTINIB DIHYDROCHLORIDE [Suspect]
     Active Substance: CATEQUENTINIB DIHYDROCHLORIDE
     Indication: Metastases to meninges
     Dosage: 10 MILLIGRAM D1, QD
     Route: 048
  8. CATEQUENTINIB DIHYDROCHLORIDE [Suspect]
     Active Substance: CATEQUENTINIB DIHYDROCHLORIDE
     Dosage: 10 MILLIGRAM D1, QD

REACTIONS (1)
  - Myelosuppression [Recovered/Resolved]
